FAERS Safety Report 8282099-8 (Version None)
Quarter: 2012Q2

REPORT INFORMATION
  Report Type: 
  Country: None (occurrence: None)
  Receive Date: 20120410
  Receipt Date: 20120404
  Transmission Date: 20120825
  Serious: Yes (Hospitalization)
  Sender: FDA-Public Use
  Company Number: 2011SP040947

PATIENT
  Age: 21 Year
  Sex: Female
  Weight: 75.7507 kg

DRUGS (5)
  1. COMPAZINE [Suspect]
     Indication: HEADACHE
  2. ALBUTEROL NIHALER [Concomitant]
  3. NUVARING [Suspect]
     Indication: MENSTRUATION IRREGULAR
     Dates: end: 20091007
  4. NUVARING [Suspect]
     Indication: MENSTRUATION IRREGULAR
     Dates: start: 20090101, end: 20090901
  5. IMITREX [Suspect]
     Indication: MIGRAINE

REACTIONS (45)
  - SWELLING [None]
  - CONTUSION [None]
  - VAGINAL HAEMORRHAGE [None]
  - CHEST PAIN [None]
  - PALPITATIONS [None]
  - PELVIC INFLAMMATORY DISEASE [None]
  - UTERINE MALPOSITION [None]
  - DRUG INEFFECTIVE [None]
  - MUSCLE SPASMS [None]
  - BIPOLAR DISORDER [None]
  - ALCOHOL ABUSE [None]
  - OVARIAN CYST RUPTURED [None]
  - ERYTHEMA [None]
  - MIGRAINE [None]
  - DYSPNOEA [None]
  - GASTRITIS [None]
  - PHYSICAL ASSAULT [None]
  - DRUG SCREEN POSITIVE [None]
  - DYSFUNCTIONAL UTERINE BLEEDING [None]
  - VULVOVAGINITIS TRICHOMONAL [None]
  - CONJUNCTIVITIS INFECTIVE [None]
  - MULTIPLE DRUG OVERDOSE INTENTIONAL [None]
  - PAIN IN EXTREMITY [None]
  - NAUSEA [None]
  - SUICIDAL BEHAVIOUR [None]
  - POISONING [None]
  - EPIGASTRIC DISCOMFORT [None]
  - ABDOMINAL DISCOMFORT [None]
  - LACERATION [None]
  - FOREIGN BODY [None]
  - INSOMNIA [None]
  - PAIN [None]
  - DEPRESSION [None]
  - PANIC ATTACK [None]
  - INTENTIONAL SELF-INJURY [None]
  - HEAD INJURY [None]
  - VOMITING [None]
  - DYSMENORRHOEA [None]
  - GUN SHOT WOUND [None]
  - RASH ERYTHEMATOUS [None]
  - RESTLESS LEGS SYNDROME [None]
  - POLLAKIURIA [None]
  - DIZZINESS [None]
  - THROMBOPHLEBITIS SUPERFICIAL [None]
  - MENOMETRORRHAGIA [None]
